FAERS Safety Report 4415441-6 (Version None)
Quarter: 2004Q3

REPORT INFORMATION
  Report Type: 
  Country: None (occurrence: None)
  Receive Date: 20040729
  Receipt Date: 20040716
  Transmission Date: 20050211
  Serious: Yes (Hospitalization)
  Sender: FDA-Public Use
  Company Number: K200401065

PATIENT
  Age: 19 Year
  Sex: Female

DRUGS (5)
  1. NORDETTE-21 [Suspect]
     Indication: MENSTRUAL DISORDER
     Dosage: 4 TABLETS, QD, ORAL; 3 TABLETS, QD, ORAL;  2 TABLETS, QD, ORAL;  1 TABLET, QD, ORAL;    ORAL
     Route: 048
     Dates: start: 20020101, end: 20021107
  2. NORDETTE-21 [Suspect]
     Indication: MENSTRUAL DISORDER
     Dosage: 4 TABLETS, QD, ORAL; 3 TABLETS, QD, ORAL;  2 TABLETS, QD, ORAL;  1 TABLET, QD, ORAL;    ORAL
     Route: 048
     Dates: start: 20021113, end: 20021119
  3. NORDETTE-21 [Suspect]
     Indication: MENSTRUAL DISORDER
     Dosage: 4 TABLETS, QD, ORAL; 3 TABLETS, QD, ORAL;  2 TABLETS, QD, ORAL;  1 TABLET, QD, ORAL;    ORAL
     Route: 048
     Dates: start: 20020101
  4. NORDETTE-21 [Suspect]
     Indication: MENSTRUAL DISORDER
     Dosage: 4 TABLETS, QD, ORAL; 3 TABLETS, QD, ORAL;  2 TABLETS, QD, ORAL;  1 TABLET, QD, ORAL;    ORAL
     Route: 048
     Dates: start: 20020101
  5. NORDETTE-21 [Suspect]
     Indication: MENSTRUAL DISORDER
     Dosage: 4 TABLETS, QD, ORAL; 3 TABLETS, QD, ORAL;  2 TABLETS, QD, ORAL;  1 TABLET, QD, ORAL;    ORAL
     Route: 048
     Dates: start: 20021001

REACTIONS (1)
  - HEPATITIS [None]
